FAERS Safety Report 8302429-8 (Version None)
Quarter: 2012Q2

REPORT INFORMATION
  Report Type: 
  Country: None (occurrence: None)
  Receive Date: 20120420
  Receipt Date: 20120405
  Transmission Date: 20120825
  Serious: Yes (Life-Threatening, Other)
  Sender: FDA-Public Use
  Company Number: CHPA2012US008983

PATIENT
  Age: 51 Year
  Sex: Male

DRUGS (1)
  1. EXCEDRIN EXTRA STRENGTH TABLETS [Suspect]
     Indication: MIGRAINE
     Dosage: 2 DF, PRN
     Route: 048
     Dates: start: 19800101

REACTIONS (5)
  - CONVULSION [None]
  - SYNCOPE [None]
  - CARDIAC ARREST [None]
  - CHEST PAIN [None]
  - DYSPEPSIA [None]
